FAERS Safety Report 12724225 (Version 1)
Quarter: 2016Q3

REPORT INFORMATION
  Report Type: Spontaneous
  Country: IR (occurrence: IR)
  Receive Date: 20160908
  Receipt Date: 20160908
  Transmission Date: 20161109
  Serious: Yes (Hospitalization, Other)
  Sender: FDA-Public Use
  Company Number: IR-AMGEN-IRNSP2016116568

PATIENT
  Age: 62 Year
  Sex: Female
  Weight: 58 kg

DRUGS (9)
  1. XELODA [Concomitant]
     Active Substance: CAPECITABINE
     Dosage: 500 MG, BID
  2. NAVELBIN [Concomitant]
     Active Substance: VINORELBINE TARTRATE
     Dosage: 30 MG, Q2WK
  3. PROLIA [Suspect]
     Active Substance: DENOSUMAB
     Indication: METASTASES TO BONE
     Dosage: 60 MG, UNK
     Route: 058
     Dates: start: 2016
  4. FOSAMAX [Concomitant]
     Active Substance: ALENDRONATE SODIUM
  5. CALCIUM VIT D [Concomitant]
     Active Substance: CALCIUM\CHOLECALCIFEROL
  6. LETROZOLE. [Concomitant]
     Active Substance: LETROZOLE
     Dosage: 2.5 MG, QD
  7. NAVELBIN [Concomitant]
     Active Substance: VINORELBINE TARTRATE
     Dosage: 20 MG, Q2WK
  8. VITAMIN B6 [Concomitant]
     Active Substance: PYRIDOXINE HYDROCHLORIDE
  9. XGEVA [Suspect]
     Active Substance: DENOSUMAB
     Indication: METASTASES TO BONE
     Dosage: 120 MG, UNK
     Route: 058
     Dates: start: 2016

REACTIONS (2)
  - Off label use [Unknown]
  - Vasculitis [Recovering/Resolving]

NARRATIVE: CASE EVENT DATE: 2016
